FAERS Safety Report 5463246-X (Version None)
Quarter: 2007Q3

REPORT INFORMATION
  Report Type: 
  Country: None (occurrence: None)
  Receive Date: 20070920
  Receipt Date: 20070914
  Transmission Date: 20080115
  Serious: Yes (Hospitalization, Other)
  Sender: FDA-Public Use
  Company Number: JP-MERCK-0707USA01153

PATIENT
  Age: 77 Year
  Sex: Female
  Weight: 40 kg

DRUGS (5)
  1. FOSAMAX [Suspect]
     Route: 048
     Dates: end: 20070422
  2. ALFACALCIDOL [Suspect]
     Route: 048
     Dates: end: 20070422
  3. CALCIUM ASPARTATE [Suspect]
     Route: 048
     Dates: end: 20070422
  4. MOSAPRIDE CITRATE [Suspect]
     Route: 048
     Dates: end: 20070422
  5. CLOSTRIDIUM BUTYRICUM [Suspect]
     Route: 048
     Dates: end: 20070422

REACTIONS (4)
  - ECTOPIC ACTH SYNDROME [None]
  - FEMORAL NECK FRACTURE [None]
  - SMALL CELL LUNG CANCER STAGE UNSPECIFIED [None]
  - THROMBOCYTOPENIA [None]
